FAERS Safety Report 5142815-0 (Version None)
Quarter: 2006Q4

REPORT INFORMATION
  Report Type: 
  Country: None (occurrence: None)
  Receive Date: 20061027
  Receipt Date: 20061010
  Transmission Date: 20070319
  Serious: No
  Sender: FDA-Public Use
  Company Number: US_0510123313

PATIENT
  Age: 48 Year
  Sex: Male
  Weight: 129.3 kg

DRUGS (16)
  1. OLANZAPINE [Suspect]
     Indication: BIPOLAR DISORDER
     Dosage: SEE IMAGE
     Route: 048
     Dates: start: 20040615, end: 20040913
  2. OLANZAPINE [Suspect]
     Indication: BIPOLAR DISORDER
     Dosage: SEE IMAGE
     Route: 048
     Dates: start: 20040913, end: 20041208
  3. OLANZAPINE [Suspect]
     Indication: BIPOLAR DISORDER
     Dosage: SEE IMAGE
     Route: 048
     Dates: start: 20030301, end: 20050701
  4. OLANZAPINE [Suspect]
     Indication: BIPOLAR DISORDER
     Dosage: SEE IMAGE
     Route: 048
     Dates: start: 20030131
  5. OLANZAPINE [Suspect]
     Indication: BIPOLAR DISORDER
     Dosage: SEE IMAGE
     Route: 048
     Dates: start: 20041208
  6. VALPROIC ACID [Concomitant]
  7. GUAIFENESIN W/DEXTROMETHORPHAN (DEXTROMETHORPHAN, GUAIFENESIN) [Concomitant]
  8. ACETAMINOPHEN [Concomitant]
  9. BACTRIM DS [Concomitant]
  10. CLINDAMYCIN HYDROCHLORIDE [Concomitant]
  11. RIFAMPICIN [Concomitant]
  12. CIPROFLOXACIN [Concomitant]
  13. PENICILLIN-VK [Concomitant]
  14. IBUPROFEN [Concomitant]
  15. RANITIDINE [Concomitant]
  16. AMOXICILLIN [Concomitant]

REACTIONS (14)
  - ABDOMINAL PAIN UPPER [None]
  - BLOOD PRESSURE DECREASED [None]
  - CARDIAC DISORDER [None]
  - CHEST PAIN [None]
  - DYSPNOEA [None]
  - ELECTROCARDIOGRAM T WAVE ABNORMAL [None]
  - FATIGUE [None]
  - FLATULENCE [None]
  - FULL BLOOD COUNT DECREASED [None]
  - GASTROINTESTINAL DISORDER [None]
  - HAEMATOCHEZIA [None]
  - HEART RATE IRREGULAR [None]
  - LIVER DISORDER [None]
  - WEIGHT INCREASED [None]
